FAERS Safety Report 9697336 (Version 2)
Quarter: 2013Q4

REPORT INFORMATION
  Report Type: Report from Study
  Country: ZA (occurrence: ZA)
  Receive Date: 20131120
  Receipt Date: 20131204
  Transmission Date: 20140711
  Serious: Yes (Hospitalization)
  Sender: FDA-Public Use
  Company Number: ZA-AMGEN-ZAFCT2013080762

PATIENT
  Age: 66 Year
  Sex: Male
  Weight: 92.1 kg

DRUGS (12)
  1. DARBEPOETIN ALFA [Suspect]
     Indication: ANAEMIA OF MALIGNANT DISEASE
     Dosage: UNK
     Route: 065
     Dates: start: 20130918
  2. STILNOX [Concomitant]
     Indication: INSOMNIA
     Dosage: 10 MG, UNK
     Dates: start: 20131010
  3. GLYCOMIN                           /00082702/ [Concomitant]
     Indication: DIABETES MELLITUS
     Dosage: 5 MG, UNK
     Dates: start: 1983
  4. SENOKOT                            /00142201/ [Concomitant]
     Indication: CONSTIPATION
     Dosage: 15-30 MG, UNK
     Dates: start: 200308
  5. SINGULAR [Concomitant]
     Indication: ASTHMA
     Dosage: 10 MG, UNK
     Dates: start: 201307
  6. SERETIDE [Concomitant]
     Indication: ASTHMA
     Dosage: 1 UNK, UNK
     Dates: start: 201307
  7. LORAZEPAM [Concomitant]
     Indication: INSOMNIA
     Dosage: 2.5 MG, UNK
     Dates: start: 200001, end: 20131009
  8. VOLTAREN                           /00372301/ [Concomitant]
     Indication: ARTHRITIS
     Dosage: 50 MG, UNK
     Dates: start: 2012
  9. STILPANE                           /01152401/ [Concomitant]
     Indication: BACK PAIN
     Dosage: 2 UNK, UNK
     Dates: start: 1988
  10. SCOPEX [Concomitant]
     Indication: MUSCLE SPASMS
     Dosage: 1 UNK, UNK
     Dates: start: 2007
  11. CARBOPLATIN [Concomitant]
     Dosage: 460 MG, UNK
     Dates: start: 20130729
  12. GEMCITABINE [Concomitant]
     Dosage: 2500 MG, UNK
     Dates: start: 20130729

REACTIONS (1)
  - Anaemia [Recovered/Resolved]
